FAERS Safety Report 11801023 (Version 2)
Quarter: 2016Q1

REPORT INFORMATION
  Report Type: Spontaneous
  Country: CA (occurrence: CA)
  Receive Date: 20151204
  Receipt Date: 20160112
  Transmission Date: 20160525
  Serious: Yes (Other)
  Sender: FDA-Public Use
  Company Number: CA-LEO PHARMA-238798

PATIENT
  Age: 69 Year
  Sex: Female

DRUGS (2)
  1. PICATO [Suspect]
     Active Substance: INGENOL MEBUTATE
     Dates: start: 20151128, end: 20151129
  2. PICATO [Suspect]
     Active Substance: INGENOL MEBUTATE
     Indication: PRODUCT USED FOR UNKNOWN INDICATION
     Dates: start: 20151128, end: 20151129

REACTIONS (6)
  - Drug dispensing error [Unknown]
  - Eyelid oedema [Recovering/Resolving]
  - Incorrect drug administration duration [Unknown]
  - Drug administered at inappropriate site [Unknown]
  - Visual acuity reduced [Recovering/Resolving]
  - Incorrect product storage [Unknown]

NARRATIVE: CASE EVENT DATE: 20151128
